FAERS Safety Report 9255682 (Version 9)
Quarter: 2017Q1

REPORT INFORMATION
  Report Type: Spontaneous
  Country: US (occurrence: US)
  Receive Date: 20130425
  Receipt Date: 20170110
  Transmission Date: 20170429
  Serious: Yes (Hospitalization, Other)
  Sender: FDA-Public Use
  Company Number: US-PFIZER INC-2013129453

PATIENT
  Age: 66 Year
  Sex: Female
  Weight: 59 kg

DRUGS (41)
  1. LYRICA [Suspect]
     Active Substance: PREGABALIN
     Indication: PARAESTHESIA
     Dosage: 75 MG, UNK
     Route: 048
  2. PERCOCET [Concomitant]
     Active Substance: ACETAMINOPHEN\OXYCODONE HYDROCHLORIDE
     Indication: BACK PAIN
     Dosage: OXYCODONE HYDROCHLORIDE 5MG /PARACETAMOL 325MG, 3X/DAY
  3. MIRALAX [Concomitant]
     Active Substance: POLYETHYLENE GLYCOL 3350
     Dosage: 527 G, 1X/DAY (527, 0, 4, 5, MIX 17GRAMS IN 8OZ OF WATER AND DRINK EVERY DAY )
     Route: 048
  4. TAMOXIFEN [Concomitant]
     Active Substance: TAMOXIFEN
     Dosage: 10 MG, 1X/DAY
     Route: 048
  5. LYRICA [Suspect]
     Active Substance: PREGABALIN
     Dosage: UNK, 3X/DAY (MORNING: 1 CAP, AFTERNOON: 1 CAP, BEDTIME: 2 CAP)
  6. OXYCONTIN [Concomitant]
     Active Substance: OXYCODONE HYDROCHLORIDE
     Indication: PAIN
     Dosage: 30 MG, 3X/DAY(EVERY 8 HRS)
  7. OXYCONTIN [Concomitant]
     Active Substance: OXYCODONE HYDROCHLORIDE
     Indication: NERVE INJURY
     Dosage: UNK
     Dates: start: 2004
  8. CALCIUM 600+ D [Concomitant]
     Indication: BONE DISORDER
     Dosage: 600 NG-200 IU, 1X/DAY
     Route: 048
  9. CLINDAMYCIN. [Concomitant]
     Active Substance: CLINDAMYCIN
     Dosage: UNK UNK, 2X/DAY
     Route: 061
  10. BIOTIN [Concomitant]
     Active Substance: BIOTIN
     Dosage: UNK
     Dates: start: 2016
  11. LYRICA [Suspect]
     Active Substance: PREGABALIN
     Indication: CAUDA EQUINA SYNDROME
     Dosage: 150 MG, 3X/DAY
     Route: 048
     Dates: start: 2004
  12. LYRICA [Suspect]
     Active Substance: PREGABALIN
     Indication: BURNING SENSATION
     Dosage: 75MG, UNK
     Route: 048
  13. OXYCONTIN [Concomitant]
     Active Substance: OXYCODONE HYDROCHLORIDE
     Indication: NEURALGIA
     Dosage: 20 MG, 4X/DAY
  14. SIMVASTATIN. [Concomitant]
     Active Substance: SIMVASTATIN
     Indication: BLOOD CHOLESTEROL ABNORMAL
     Dosage: 40 MG, 1X/DAY AT BEDTIME
     Route: 048
     Dates: start: 20130501, end: 2016
  15. BLACK COHOSH [Concomitant]
     Active Substance: BLACK COHOSH
     Indication: HOT FLUSH
     Dosage: UNK, AS DIRECTED
     Dates: start: 2016
  16. VITAMIN B12 [Concomitant]
     Active Substance: CYANOCOBALAMIN
     Indication: SUPPLEMENTATION THERAPY
     Dosage: 500 UG, 1X/DAY
     Route: 048
  17. FISH OIL [Concomitant]
     Active Substance: FISH OIL
     Indication: BLOOD CHOLESTEROL INCREASED
     Dosage: 1000 MG, 2X/DAY
     Route: 048
     Dates: end: 201610
  18. PREGABALIN. [Concomitant]
     Active Substance: PREGABALIN
     Dosage: UNK
  19. NAPROSYN [Concomitant]
     Active Substance: NAPROXEN
  20. OXYCODONE AND ACETAMINOPHEN [Concomitant]
     Active Substance: ACETAMINOPHEN\OXYCODONE HYDROCHLORIDE
     Indication: PAIN
     Dosage: OXYCODONE HYDROCHLORIDE 5MG-PARACETAMOL 325MG, 3X/DAY
  21. LYRICA [Suspect]
     Active Substance: PREGABALIN
     Dosage: 150 MG, ONE CAPS EVERY MORNING (Q AM), ONE CAP EVERY (Q) AFTERNOON, TWO CAPS EVERY BEDTIME (QHS)
     Route: 048
     Dates: start: 20130725
  22. LYRICA [Suspect]
     Active Substance: PREGABALIN
     Dosage: 150 MG, 3X/DAY
  23. LYRICA [Suspect]
     Active Substance: PREGABALIN
     Dosage: 1 CAPSULE Q A.M., 1 CAPSULE Q AFTERNOON, 2 CAPSULE Q HS
     Route: 048
     Dates: start: 20131212
  24. VITAMIN C [Concomitant]
     Active Substance: ASCORBIC ACID
     Indication: SUPPLEMENTATION THERAPY
     Dosage: 500 MG, 1X/DAY
     Route: 048
  25. ZOSTAVAX [Concomitant]
     Active Substance: VARICELLA-ZOSTER VIRUS STRAIN OKA/MERCK LIVE ANTIGEN
     Indication: PROPHYLAXIS
     Dosage: 0.65 ML, SINGLE (ONCE)
     Route: 058
  26. PREMPRO [Concomitant]
     Active Substance: ESTROGENS, CONJUGATED\MEDROXYPROGESTERONE ACETATE
  27. BIOTIN [Concomitant]
     Active Substance: BIOTIN
     Dosage: UNK
  28. LYRICA [Suspect]
     Active Substance: PREGABALIN
     Dosage: 150 MG CAPSULE 1=AM, 1=NOON, 2=BEDTIME
  29. LYRICA [Suspect]
     Active Substance: PREGABALIN
     Indication: NEURALGIA
     Dosage: ONE CAPSULE EVERY MORNING, ONE CAPSULE EVERY AFTERNOON, AND TWO CAPSULES EVERY BEDTIME
     Route: 048
     Dates: start: 20130501
  30. VITAMIN D3 [Concomitant]
     Active Substance: CHOLECALCIFEROL
     Indication: VITAMIN D DEFICIENCY
     Dosage: 2000 IU (2 TABLETS) TOTAL OF 4000 IU EVERY DAY
     Route: 048
  31. CLINDAMYCIN. [Concomitant]
     Active Substance: CLINDAMYCIN
     Indication: ACNE
     Dosage: UNK UNK, 1X/DAY
     Route: 061
     Dates: start: 201408
  32. POLYETHYLENE GLYCOL 3350. [Concomitant]
     Active Substance: POLYETHYLENE GLYCOL 3350
     Dosage: 17 G, 2X/DAY
     Route: 048
  33. SERTRALINE [Concomitant]
     Active Substance: SERTRALINE HYDROCHLORIDE
     Dosage: UNK
  34. LYRICA [Suspect]
     Active Substance: PREGABALIN
     Indication: PAIN
     Dosage: 75 MG, UNK
     Route: 048
  35. OXYCONTIN [Concomitant]
     Active Substance: OXYCODONE HYDROCHLORIDE
     Indication: PROCEDURAL PAIN
     Dosage: 30 MG, 3X/DAY Q8 HRS
     Route: 048
  36. VITAMIN D [Concomitant]
     Active Substance: CHOLECALCIFEROL
     Dosage: 50000 IU, 2X/WEEK
  37. PERCOCET [Concomitant]
     Active Substance: ACETAMINOPHEN\OXYCODONE HYDROCHLORIDE
     Indication: PROCEDURAL PAIN
     Dosage: OXYCODONE HYDROCHLORIDE 5MG/PARACETAMOL 325MG, 3X/DAY
     Route: 048
  38. PERCOCET [Concomitant]
     Active Substance: ACETAMINOPHEN\OXYCODONE HYDROCHLORIDE
     Indication: NEURALGIA
     Dosage: 4 [OXYCODONE HYDROCHLORIDE 5MG/PARACETAMOL 325MG], DAILY
     Route: 048
  39. ATORVASTATIN [Concomitant]
     Active Substance: ATORVASTATIN
     Dosage: UNK
     Dates: start: 200610
  40. ATORVASTATIN [Concomitant]
     Active Substance: ATORVASTATIN
     Dosage: UNK
     Dates: start: 2016
  41. CLINDAMYCIN. [Concomitant]
     Active Substance: CLINDAMYCIN
     Dosage: UNK UNK, AS NEEDED
     Route: 061

REACTIONS (16)
  - Pain [Not Recovered/Not Resolved]
  - Frustration tolerance decreased [Not Recovered/Not Resolved]
  - Sensory disturbance [Not Recovered/Not Resolved]
  - Sleep disorder [Not Recovered/Not Resolved]
  - Vitamin D deficiency [Unknown]
  - Breast cancer female [Recovered/Resolved]
  - Hypoaesthesia [Not Recovered/Not Resolved]
  - Anal incontinence [Not Recovered/Not Resolved]
  - Depression [Not Recovered/Not Resolved]
  - Drug ineffective [Not Recovered/Not Resolved]
  - Activities of daily living impaired [Unknown]
  - Nerve injury [Not Recovered/Not Resolved]
  - Muscle spasms [Not Recovered/Not Resolved]
  - Stress urinary incontinence [Not Recovered/Not Resolved]
  - Hypercholesterolaemia [Recovering/Resolving]
  - Pain in extremity [Unknown]

NARRATIVE: CASE EVENT DATE: 200403
